FAERS Safety Report 8989071 (Version 2)
Quarter: 2013Q1

REPORT INFORMATION
  Report Type: Spontaneous
  Country: IT (occurrence: IT)
  Receive Date: 20121228
  Receipt Date: 20130211
  Transmission Date: 20140127
  Serious: Yes (Hospitalization, Other)
  Sender: FDA-Public Use
  Company Number: IT-ELI_LILLY_AND_COMPANY-IT201212006886

PATIENT
  Age: 29 Year
  Sex: Female

DRUGS (12)
  1. ZYPREXA [Suspect]
     Dosage: 2.5 DF, UNKNOWN
     Route: 048
  2. ZYPREXA [Suspect]
     Dosage: 5 DF, SINGLE
     Route: 048
     Dates: start: 20121211, end: 20121211
  3. TRITTICO [Concomitant]
     Dosage: 1 DF, UNKNOWN
     Route: 048
  4. TRITTICO [Concomitant]
     Dosage: 10 DF, SINGLE
     Route: 048
     Dates: start: 20121211, end: 20121211
  5. TEGRETOL [Concomitant]
     Dosage: 1 DF, UNKNOWN
     Route: 048
  6. TEGRETOL [Concomitant]
     Dosage: 10 DF, SINGLE
     Route: 048
     Dates: start: 20121211, end: 20121211
  7. DULCOLAX [Concomitant]
     Dosage: 5 MG, UNKNOWN
     Route: 048
  8. DULCOLAX [Concomitant]
     Dosage: 25 MG, SINGLE
     Route: 048
     Dates: start: 20121211, end: 20121211
  9. RIVOTRIL [Concomitant]
     Dosage: 1 DF, UNKNOWN
     Route: 048
  10. RIVOTRIL [Concomitant]
     Dosage: 10 DF, SINGLE
     Route: 048
     Dates: start: 20121211, end: 20121211
  11. CIPRALEX [Concomitant]
     Dosage: 1 DF, UNKNOWN
     Route: 048
  12. CIPRALEX [Concomitant]
     Dosage: 10 DF, SINGLE
     Route: 048
     Dates: start: 20121211, end: 20121211

REACTIONS (2)
  - Drug abuse [Unknown]
  - Intentional self-injury [Unknown]
